FAERS Safety Report 14161134 (Version 1)
Quarter: 2017Q4

REPORT INFORMATION
  Report Type: Spontaneous
  Country: US (occurrence: US)
  Receive Date: 20171104
  Receipt Date: 20171104
  Transmission Date: 20180321
  Serious: Yes (Other)
  Sender: FDA-Public Use
  Company Number: None

PATIENT
  Sex: Female
  Weight: 95.4 kg

DRUGS (1)
  1. LISINOPRIL TAB 5MG [Suspect]
     Active Substance: LISINOPRIL
     Indication: RENAL DISORDER
     Dosage: ?          QUANTITY:1 TABLET(S);?
     Route: 048
     Dates: start: 20170907, end: 20171103

REACTIONS (4)
  - Choking [None]
  - Product shape issue [None]
  - Vomiting [None]
  - Dysphagia [None]

NARRATIVE: CASE EVENT DATE: 20171103
